FAERS Safety Report 23824219 (Version 3)
Quarter: 2025Q3

REPORT INFORMATION
  Report Type: Spontaneous
  Country: CA (occurrence: CA)
  Receive Date: 20240507
  Receipt Date: 20250909
  Transmission Date: 20251021
  Serious: Yes (Other)
  Sender: AUROBINDO
  Company Number: CA-AUROBINDO-AUR-APL-2023-030382

PATIENT
  Age: 56 Year
  Sex: Female

DRUGS (14)
  1. PANTOPRAZOLE [Suspect]
     Active Substance: PANTOPRAZOLE
     Indication: Dyspareunia
     Route: 065
  2. PANTOPRAZOLE [Suspect]
     Active Substance: PANTOPRAZOLE
     Indication: Lichen planus
  3. PERINDOPRIL [Suspect]
     Active Substance: PERINDOPRIL
     Indication: Dyspareunia
     Route: 065
  4. PERINDOPRIL [Suspect]
     Active Substance: PERINDOPRIL
     Indication: Lichen planus
  5. CANDESARTAN [Suspect]
     Active Substance: CANDESARTAN
     Indication: Dyspareunia
     Route: 065
  6. CANDESARTAN [Suspect]
     Active Substance: CANDESARTAN
     Indication: Lichen planus
  7. ATENOLOL [Suspect]
     Active Substance: ATENOLOL
     Indication: Dyspareunia
     Route: 065
  8. ATENOLOL [Suspect]
     Active Substance: ATENOLOL
     Indication: Lichen planus
  9. HYDROCHLOROTHIAZIDE [Suspect]
     Active Substance: HYDROCHLOROTHIAZIDE
     Indication: Dyspareunia
     Route: 065
  10. HYDROCHLOROTHIAZIDE [Suspect]
     Active Substance: HYDROCHLOROTHIAZIDE
     Indication: Lichen planus
  11. MISOPROSTOL [Suspect]
     Active Substance: MISOPROSTOL
     Indication: Dyspareunia
     Route: 065
  12. MISOPROSTOL [Suspect]
     Active Substance: MISOPROSTOL
     Indication: Lichen planus
  13. CONJUGATED ESTROGENS [Suspect]
     Active Substance: ESTROGENS, CONJUGATED
     Indication: Lichen planus
     Route: 061
  14. DICLOFENAC SODIUM\MISOPROSTOL [Suspect]
     Active Substance: DICLOFENAC SODIUM\MISOPROSTOL
     Indication: Lichen planus
     Route: 065

REACTIONS (3)
  - Drug ineffective [Unknown]
  - Lichen planus [Unknown]
  - Condition aggravated [Unknown]
